FAERS Safety Report 14851452 (Version 1)
Quarter: 2018Q2

REPORT INFORMATION
  Report Type: Spontaneous
  Country: FR (occurrence: FR)
  Receive Date: 20180507
  Receipt Date: 20180507
  Transmission Date: 20180711
  Serious: Yes (Hospitalization)
  Sender: FDA-Public Use
  Company Number: FR-MERCK KGAA-2047262

PATIENT
  Age: 58 Year
  Sex: Male

DRUGS (1)
  1. NOVOTHYROX [Suspect]
     Active Substance: LEVOTHYROXINE SODIUM
     Indication: AUTOIMMUNE HYPOTHYROIDISM

REACTIONS (19)
  - Loss of consciousness [None]
  - Musculoskeletal discomfort [None]
  - Dizziness [None]
  - Psychiatric symptom [None]
  - Asthenia [None]
  - Pain [None]
  - Decreased activity [None]
  - Malaise [None]
  - Abdominal discomfort [None]
  - Fatigue [None]
  - Myalgia [None]
  - Injury [None]
  - Arthralgia [None]
  - Irritability [None]
  - Impaired work ability [None]
  - Mood altered [None]
  - Libido decreased [None]
  - Hypothyroidism [None]
  - Blood thyroid stimulating hormone increased [None]

NARRATIVE: CASE EVENT DATE: 20170928
